FAERS Safety Report 8654035 (Version 2)
Quarter: 2012Q4

REPORT INFORMATION
  Report Type: 
  Country: BE (occurrence: BE)
  Receive Date: 20120709
  Receipt Date: 20121002
  Transmission Date: 20130627
  Serious: Yes (Hospitalization)
  Sender: FDA-Public Use
  Company Number: BE-ELI_LILLY_AND_COMPANY-BE201206009767

PATIENT
  Age: 49 None
  Sex: Female
  Weight: 98 kg

DRUGS (10)
  1. CYMBALTA [Suspect]
     Indication: DEPRESSION
     Dosage: 60 mg, qd
     Dates: start: 20120504
  2. CYMBALTA [Suspect]
     Dosage: 60 mg, qod
     Dates: end: 20120630
  3. SIMVASTATIN [Concomitant]
  4. SYMBICORT [Concomitant]
  5. PANTOMED                           /01263204/ [Concomitant]
     Dosage: UNK
     Dates: start: 2006
  6. DAFALGAN [Concomitant]
  7. VITAMIN D [Concomitant]
  8. FOLIC ACID [Concomitant]
  9. VITAMIN B12 [Concomitant]
  10. CONTRAMAL RETARD [Concomitant]
     Dosage: 100 DF, bid
     Dates: start: 2009

REACTIONS (4)
  - Vision blurred [Unknown]
  - Visual acuity reduced [Recovering/Resolving]
  - Visual evoked potentials abnormal [Recovering/Resolving]
  - Headache [Recovering/Resolving]
